FAERS Safety Report 24296561 (Version 2)
Quarter: 2024Q3

REPORT INFORMATION
  Report Type: Spontaneous
  Country: JP (occurrence: JP)
  Receive Date: 20240909
  Receipt Date: 20240930
  Transmission Date: 20241017
  Serious: Yes (Other)
  Sender: GLAXOSMITHKLINE
  Company Number: JP-GLAXOSMITHKLINE-JP2024JPN109072

PATIENT

DRUGS (3)
  1. FLOLAN [Suspect]
     Active Substance: EPOPROSTENOL SODIUM
     Dosage: DOSE INCREASE UP TO 57 NG/KG/MIN
  2. MACITENTAN [Concomitant]
     Active Substance: MACITENTAN
     Dosage: 10 MG
  3. TADALAFIL [Concomitant]
     Active Substance: TADALAFIL
     Dosage: 40 MG

REACTIONS (4)
  - Immunoglobulin G4 related disease [Unknown]
  - Parotid gland enlargement [Unknown]
  - Salivary gland enlargement [Unknown]
  - Overdose [Unknown]
